FAERS Safety Report 22644354 (Version 1)
Quarter: 2023Q2

REPORT INFORMATION
  Report Type: Spontaneous
  Country: NL (occurrence: NL)
  Receive Date: 20230627
  Receipt Date: 20230627
  Transmission Date: 20230721
  Serious: Yes (Death)
  Sender: FDA-Public Use
  Company Number: NL-HAMELN-2023HAM000740

PATIENT
  Age: 42 Year
  Sex: Male

DRUGS (10)
  1. FENTANYL [Suspect]
     Active Substance: FENTANYL
     Indication: Product used for unknown indication
     Dosage: 12
     Route: 065
     Dates: start: 20201106
  2. FENTANYL [Suspect]
     Active Substance: FENTANYL
     Dosage: UNK
     Route: 065
     Dates: start: 20201106
  3. HALDOL [Suspect]
     Active Substance: HALOPERIDOL
     Indication: Product used for unknown indication
     Dosage: 2.5 MG SC. MAX 4 P PER DAY.
     Route: 058
     Dates: start: 20201106
  4. MORPHINE [Suspect]
     Active Substance: MORPHINE
     Indication: Dyspnoea
     Dosage: 6 DD 5 MG SC
     Route: 058
     Dates: start: 20201106
  5. MORPHINE [Suspect]
     Active Substance: MORPHINE
     Indication: Pain
  6. MIDAZOLAM [Suspect]
     Active Substance: MIDAZOLAM
     Indication: Restlessness
     Dosage: 10 MG SC ZN 6DD
     Route: 058
     Dates: start: 20201106
  7. MIDAZOLAM [Suspect]
     Active Substance: MIDAZOLAM
     Dosage: TWO TIMES 5 MG
     Route: 058
     Dates: start: 20201106
  8. OXYCODONE [Suspect]
     Active Substance: OXYCODONE
     Indication: Pain
     Dosage: 1 OXYCODONE ZN
     Route: 065
     Dates: start: 20201102
  9. LORAZEPAM [Suspect]
     Active Substance: LORAZEPAM
     Indication: Product used for unknown indication
     Dosage: 2MG SL 3DD
     Route: 065
     Dates: start: 20201106
  10. NICOTINELL [Concomitant]
     Active Substance: NICOTINE
     Indication: Nicotine dependence
     Dosage: 1 D1
     Route: 062
     Dates: start: 20201106

REACTIONS (4)
  - Condition aggravated [Fatal]
  - Wrong product administered [Fatal]
  - Product prescribing issue [Fatal]
  - Off label use [Fatal]
